FAERS Safety Report 11877186 (Version 1)
Quarter: 2015Q4

REPORT INFORMATION
  Report Type: Spontaneous
  Country: US (occurrence: US)
  Receive Date: 20151229
  Receipt Date: 20151229
  Transmission Date: 20160305
  Serious: No
  Sender: FDA-Public Use
  Company Number: US-TARO-2015TAR01072

PATIENT
  Sex: Female
  Weight: 66.67 kg

DRUGS (3)
  1. SYNTHROID [Concomitant]
     Active Substance: LEVOTHYROXINE SODIUM
     Dosage: 75 ?G, UNK
  2. LUNESTA [Concomitant]
     Active Substance: ESZOPICLONE
     Dosage: 3 MG, 1X/DAY AT NIGHT
  3. TRIAMCINOLONE CREAM 0.1% [Suspect]
     Active Substance: TRIAMCINOLONE
     Indication: RASH
     Dosage: AT LEAST 3X/DAY
     Route: 061
     Dates: start: 2015

REACTIONS (1)
  - Drug effect incomplete [Not Recovered/Not Resolved]

NARRATIVE: CASE EVENT DATE: 2015
